FAERS Safety Report 24573481 (Version 2)
Quarter: 2024Q4

REPORT INFORMATION
  Report Type: Report from Study
  Country: IT (occurrence: IT)
  Receive Date: 20241102
  Receipt Date: 20241111
  Transmission Date: 20250115
  Serious: Yes (Life-Threatening, Hospitalization, Other)
  Sender: GENMAB
  Company Number: IT-GENMAB-2024-04003

PATIENT
  Age: 71 Year
  Sex: Male
  Weight: 81 kg

DRUGS (1)
  1. EPCORITAMAB [Suspect]
     Active Substance: EPCORITAMAB
     Indication: High grade B-cell lymphoma recurrent
     Dosage: 1ST DOSE (0.16 MG) ADMINISTERED ON 04OCT2024 2ND DOSE (0.8 MG) ADMINISTERED ON 11OCT2024
     Route: 058
     Dates: start: 20241004, end: 20241011

REACTIONS (2)
  - Immune effector cell-associated neurotoxicity syndrome [Recovered/Resolved]
  - Cytokine release syndrome [Recovered/Resolved]

NARRATIVE: CASE EVENT DATE: 20241017
